FAERS Safety Report 4716822-3 (Version None)
Quarter: 2005Q3

REPORT INFORMATION
  Report Type: 
  Country: None (occurrence: None)
  Receive Date: 20050714
  Receipt Date: 20050706
  Transmission Date: 20060218
  Serious: No
  Sender: FDA-Public Use
  Company Number: RENA-11364

PATIENT
  Sex: Male

DRUGS (10)
  1. RENAGEL [Suspect]
     Indication: HYPERPHOSPHATAEMIA
     Dosage: 0.5 G TID PO
     Route: 048
     Dates: start: 20050311, end: 20050323
  2. METHYCOBIDE (MECOBALAMIN) [Concomitant]
  3. NEPTEN (TRIMEBUTINE MALEATE) [Concomitant]
  4. CINBERAMIN (BROTIZOLAM) [Concomitant]
  5. EBASTEL [Concomitant]
  6. KALISELUM (CALCIUM POLYSTYRENE SULFONATE) [Concomitant]
  7. DIOVAN [Concomitant]
  8. NORVASC [Concomitant]
  9. EPOGIN [Concomitant]
  10. STRONG NEO-MINOPHAGEN C (AMINOACETIC ACID, CYSTEINE, GLYCYRRHIZIC ACID [Concomitant]

REACTIONS (1)
  - DRUG ERUPTION [None]
